FAERS Safety Report 4828215-9 (Version None)
Quarter: 2005Q4

REPORT INFORMATION
  Report Type: 
  Country: None (occurrence: None)
  Receive Date: 20051115
  Receipt Date: 20050819
  Transmission Date: 20060501
  Serious: Yes (Other)
  Sender: FDA-Public Use
  Company Number: 200512400JP

PATIENT
  Age: 63 Year
  Sex: Male

DRUGS (11)
  1. RILUTEK [Suspect]
     Indication: AMYOTROPHIC LATERAL SCLEROSIS
     Route: 048
     Dates: start: 20050314, end: 20050522
  2. RILUTEK [Suspect]
     Route: 048
     Dates: start: 20050608, end: 20050608
  3. RILUTEK [Suspect]
     Route: 048
     Dates: start: 20050614, end: 20050614
  4. COMESGEN [Concomitant]
     Indication: NERVOUS SYSTEM DISORDER
     Route: 048
     Dates: start: 20050107, end: 20050808
  5. COMESGEN [Concomitant]
     Indication: PROPHYLAXIS
     Route: 048
     Dates: start: 20050107, end: 20050808
  6. SOLANTAL [Concomitant]
     Indication: ANALGESIC THERAPY
     Dosage: DOSE: 3 TABLETS A DAY
     Route: 048
     Dates: start: 20050225, end: 20050314
  7. SELBEX [Concomitant]
     Indication: PROPHYLAXIS
     Route: 048
     Dates: start: 20050225, end: 20050314
  8. NAUZART [Concomitant]
     Indication: NAUSEA
     Dosage: DOSE: 2 TABLETS A DAY
     Route: 048
     Dates: start: 20050420, end: 20050425
  9. NAUZART [Concomitant]
     Indication: DECREASED APPETITE
     Dosage: DOSE: 2 TABLETS A DAY
     Route: 048
     Dates: start: 20050420, end: 20050425
  10. GASTER [Concomitant]
     Indication: NAUSEA
     Dosage: DOSE: 2 TABLETS A DAY
     Route: 048
     Dates: start: 20050420, end: 20050425
  11. GASTER [Concomitant]
     Indication: DECREASED APPETITE
     Dosage: DOSE: 2 TABLETS A DAY
     Route: 048
     Dates: start: 20050420, end: 20050425

REACTIONS (4)
  - COUGH [None]
  - DYSPNOEA [None]
  - LUNG INFILTRATION [None]
  - PYREXIA [None]
